FAERS Safety Report 21854423 (Version 1)
Quarter: 2023Q1

REPORT INFORMATION
  Report Type: Spontaneous
  Country: US (occurrence: US)
  Receive Date: 20230112
  Receipt Date: 20230112
  Transmission Date: 20230417
  Serious: No
  Sender: FDA-Public Use
  Company Number: US-BRISTOL-MYERS SQUIBB COMPANY-2023-005513

PATIENT
  Age: 34 Year
  Sex: Female
  Weight: 61.23 kg

DRUGS (1)
  1. ELIQUIS [Suspect]
     Active Substance: APIXABAN
     Indication: Cerebrovascular accident prophylaxis
     Dosage: DOSE : 2 TABLETS;     FREQ : TWICE DAILY
     Route: 048
     Dates: start: 20221111

REACTIONS (2)
  - Product prescribing issue [Unknown]
  - Product administration error [Unknown]
